FAERS Safety Report 12269603 (Version 2)
Quarter: 2016Q3

REPORT INFORMATION
  Report Type: Spontaneous
  Country: CZ (occurrence: CZ)
  Receive Date: 20160414
  Receipt Date: 20160922
  Transmission Date: 20161109
  Serious: Yes (Other)
  Sender: FDA-Public Use
  Company Number: CZ-JNJFOC-20160406023

PATIENT
  Age: 8 Year
  Sex: Female
  Weight: 36 kg

DRUGS (5)
  1. TIMONIL [Suspect]
     Active Substance: CARBAMAZEPINE
     Indication: PARTIAL SEIZURES
     Route: 048
     Dates: start: 201501
  2. TOPAMAX [Suspect]
     Active Substance: TOPIRAMATE
     Indication: PARTIAL SEIZURES
     Route: 048
     Dates: start: 20151002
  3. TOPAMAX [Suspect]
     Active Substance: TOPIRAMATE
     Indication: PARTIAL SEIZURES
     Route: 048
     Dates: start: 20150423
  4. PREGABALIN. [Suspect]
     Active Substance: PREGABALIN
     Indication: PARTIAL SEIZURES
     Route: 048
     Dates: start: 20160121, end: 20160317
  5. TIMONIL [Suspect]
     Active Substance: CARBAMAZEPINE
     Indication: PARTIAL SEIZURES
     Route: 048
     Dates: start: 20151002

REACTIONS (5)
  - Seizure [Unknown]
  - Aggression [Not Recovered/Not Resolved]
  - Psychotic disorder [Recovered/Resolved]
  - Hallucination [Recovered/Resolved]
  - Mood altered [Not Recovered/Not Resolved]

NARRATIVE: CASE EVENT DATE: 20150501
